FAERS Safety Report 8819096 (Version 1)
Quarter: 2012Q4

REPORT INFORMATION
  Report Type: Report from Study
  Country: CA (occurrence: CA)
  Receive Date: 20121001
  Receipt Date: 20121001
  Transmission Date: 20130627
  Serious: No
  Sender: FDA-Public Use
  Company Number: CA-JNJFOC-20120911232

PATIENT
  Sex: Female
  Weight: 61.5 kg

DRUGS (2)
  1. REMICADE [Suspect]
     Indication: COLITIS ULCERATIVE
     Dosage: On 19-JUL-2012 the patient had her 9th infusion.
     Route: 042
     Dates: start: 20110506
  2. IMURAN [Concomitant]
     Route: 048

REACTIONS (1)
  - Fungal infection [Recovered/Resolved]
